FAERS Safety Report 23570193 (Version 1)
Quarter: 2024Q1

REPORT INFORMATION
  Report Type: Spontaneous
  Country: US (occurrence: US)
  Receive Date: 20240227
  Receipt Date: 20240227
  Transmission Date: 20240410
  Serious: Yes (Other)
  Sender: FDA-Public Use
  Company Number: US-BAYER-2024A025528

PATIENT
  Age: 26 Year
  Sex: Female
  Weight: 106.12 kg

DRUGS (7)
  1. MIRENA [Suspect]
     Active Substance: LEVONORGESTREL
     Indication: Contraception
     Dosage: 20?G/DAY
     Route: 015
     Dates: start: 20230407
  2. MIRENA [Suspect]
     Active Substance: LEVONORGESTREL
     Indication: Heavy menstrual bleeding
  3. MELATONIN [Concomitant]
     Active Substance: MELATONIN
  4. SERTRALINE [Concomitant]
     Active Substance: SERTRALINE HYDROCHLORIDE
  5. BUPROPION [Concomitant]
     Active Substance: BUPROPION
  6. ETONOGESTREL [Concomitant]
     Active Substance: ETONOGESTREL
  7. WELLBUTRIN [Suspect]
     Active Substance: BUPROPION HYDROCHLORIDE

REACTIONS (12)
  - Embedded device [None]
  - Weight increased [None]
  - Abdominal pain lower [None]
  - Depression [None]
  - Pelvic pain [None]
  - Asthenia [None]
  - Fatigue [None]
  - Abdominal distension [None]
  - Anger [None]
  - Device issue [None]
  - Hirsutism [None]
  - Muscle spasms [None]
